FAERS Safety Report 16761504 (Version 1)
Quarter: 2019Q3

REPORT INFORMATION
  Report Type: Spontaneous
  Country: US (occurrence: US)
  Receive Date: 20190711
  Receipt Date: 20190711
  Transmission Date: 20191005
  Serious: Yes (Disabling)
  Sender: FDA-Public Use
  Company Number: None

PATIENT
  Age: 51 Year
  Sex: Female
  Weight: 81.65 kg

DRUGS (12)
  1. CHONDROTIN (ALICE FOODS) [Concomitant]
  2. VITAMIN D [Concomitant]
     Active Substance: VITAMIN D NOS
  3. ALEVE [Concomitant]
     Active Substance: NAPROXEN SODIUM
  4. BUPTROPION XL [Concomitant]
  5. VIVELLE DOT .05 PATCH [Concomitant]
  6. NATURE MADE D3 [Concomitant]
  7. MORTIN [Concomitant]
     Active Substance: SULFAMETHOXAZOLE\TRIMETHOPRIM
  8. ALICE FOODS GLUCOSAMINE [Concomitant]
  9. MSM (ALICE FOODS) [Concomitant]
  10. CALCIUM [Concomitant]
     Active Substance: CALCIUM
  11. BUPROPION HCL [Suspect]
     Active Substance: BUPROPION HYDROCHLORIDE
     Indication: DEPRESSION
     Dosage: ?          QUANTITY:150 UNK - UNKNOWN;?
     Route: 048
     Dates: start: 20190413, end: 20190620
  12. MAGNESIUM [Concomitant]
     Active Substance: MAGNESIUM

REACTIONS (12)
  - Feeling abnormal [None]
  - Stress [None]
  - Fatigue [None]
  - Suicidal ideation [None]
  - Product substitution issue [None]
  - Diarrhoea [None]
  - Anger [None]
  - Drug ineffective [None]
  - Crying [None]
  - Anxiety [None]
  - Headache [None]
  - Decreased appetite [None]

NARRATIVE: CASE EVENT DATE: 20190620
